FAERS Safety Report 22204140 (Version 1)
Quarter: 2023Q2

REPORT INFORMATION
  Report Type: Spontaneous
  Country: CN (occurrence: CN)
  Receive Date: 20230412
  Receipt Date: 20230412
  Transmission Date: 20230722
  Serious: No
  Sender: FDA-Public Use
  Company Number: CN-PFIZER INC-202300149133

PATIENT
  Age: 88 Year
  Sex: Female

DRUGS (1)
  1. PAXLOVID [Suspect]
     Active Substance: NIRMATRELVIR\RITONAVIR
     Indication: COVID-19 pneumonia
     Dosage: UNK
     Route: 048
     Dates: start: 20230407, end: 20230408

REACTIONS (3)
  - Product use complaint [Unknown]
  - Product size issue [Unknown]
  - Dysphagia [Unknown]
